FAERS Safety Report 6415107-7 (Version None)
Quarter: 2009Q4

REPORT INFORMATION
  Report Type: 
  Country: None (occurrence: None)
  Receive Date: 20091027
  Receipt Date: 20091012
  Transmission Date: 20100525
  Serious: Yes (Hospitalization)
  Sender: FDA-Public Use
  Company Number: US-ROCHE-662624

PATIENT
  Sex: Female
  Weight: 88.5 kg

DRUGS (21)
  1. CAPECITABINE [Suspect]
     Indication: DRUG USE FOR UNKNOWN INDICATION
     Route: 065
  2. HYDROMORPHONE HYDROCHLORIDE/MORPHINE SULFATE/OXYCODONE HYDROCHLORIDE/+ [Suspect]
     Indication: PAIN
     Route: 065
  3. OXYCODONE/PARACETAMOL [Suspect]
     Indication: PAIN
     Route: 065
  4. HERCEPTIN [Concomitant]
  5. LUNESTA [Concomitant]
  6. MORPHINE [Concomitant]
  7. ADVIL [Concomitant]
  8. EXCEDRIN (MIGRAINE) [Concomitant]
  9. IBUPROFEN [Concomitant]
  10. ULTRAM [Concomitant]
  11. VICODIN [Concomitant]
  12. NEURONTIN [Concomitant]
  13. TAMOXIFEN CITRATE [Concomitant]
  14. PHENERGAN HCL [Concomitant]
  15. ZOFRAN [Concomitant]
  16. PROTONIX [Concomitant]
  17. CALCIUM [Concomitant]
  18. VITAMIN D2 [Concomitant]
     Dosage: DRUG: VITAMIN D
  19. HYDROXYZINE [Concomitant]
  20. AROMASIN [Concomitant]
  21. PREVACID [Concomitant]

REACTIONS (19)
  - ABDOMINAL DISTENSION [None]
  - BILE DUCT OBSTRUCTION [None]
  - BLOOD BILIRUBIN INCREASED [None]
  - BONE DISORDER [None]
  - BREAST CANCER METASTATIC [None]
  - CHROMATURIA [None]
  - CONSTIPATION [None]
  - COUGH [None]
  - DYSURIA [None]
  - ESCHERICHIA SEPSIS [None]
  - GASTROOESOPHAGEAL REFLUX DISEASE [None]
  - JAUNDICE CHOLESTATIC [None]
  - KLEBSIELLA BACTERAEMIA [None]
  - MALIGNANT NEOPLASM PROGRESSION [None]
  - MALNUTRITION [None]
  - NAUSEA [None]
  - PRURITUS [None]
  - PULMONARY EMBOLISM [None]
  - VOMITING [None]
